FAERS Safety Report 5132688-4 (Version None)
Quarter: 2006Q4

REPORT INFORMATION
  Report Type: 
  Country: None (occurrence: None)
  Receive Date: 20061017
  Receipt Date: 20061004
  Transmission Date: 20070319
  Serious: Yes (Hospitalization)
  Sender: FDA-Public Use
  Company Number: S06-FRA-04253-01

PATIENT
  Age: 82 Year
  Sex: Female

DRUGS (1)
  1. SEROPLEX [Suspect]
     Indication: DEPRESSION
     Dosage: 10 MG QD PO
     Route: 048
     Dates: end: 20060522

REACTIONS (2)
  - HYPOGLYCAEMIA [None]
  - HYPONATRAEMIA [None]
